FAERS Safety Report 5521627-X (Version None)
Quarter: 2007Q4

REPORT INFORMATION
  Report Type: 
  Country: None (occurrence: None)
  Receive Date: 20071119
  Receipt Date: 20071119
  Transmission Date: 20080405
  Serious: No
  Sender: FDA-Public Use
  Company Number: None

PATIENT
  Age: 18 Year
  Sex: Female
  Weight: 50 kg

DRUGS (1)
  1. LARIAM [Suspect]
     Indication: MALARIA
     Dates: start: 20000601, end: 20000621

REACTIONS (6)
  - CHILLS [None]
  - DEPRESSION [None]
  - DIARRHOEA [None]
  - DYSPNOEA [None]
  - PANIC ATTACK [None]
  - THINKING ABNORMAL [None]
